FAERS Safety Report 18555967 (Version 1)
Quarter: 2020Q4

REPORT INFORMATION
  Report Type: Spontaneous
  Country: US (occurrence: US)
  Receive Date: 20201127
  Receipt Date: 20201127
  Transmission Date: 20210114
  Serious: No
  Sender: FDA-Public Use
  Company Number: US-PERRIGO-19US015002

PATIENT
  Sex: Female

DRUGS (1)
  1. NICOTINE POLACRILEX [Suspect]
     Active Substance: NICOTINE
     Indication: PRODUCT USED FOR UNKNOWN INDICATION
     Dosage: 4 MG, 4 TIMES WITHIN 1 HOUR
     Route: 002
     Dates: start: 201912

REACTIONS (2)
  - Hyperhidrosis [Unknown]
  - Overdose [Unknown]

NARRATIVE: CASE EVENT DATE: 201912
